FAERS Safety Report 10647319 (Version 7)
Quarter: 2015Q1

REPORT INFORMATION
  Report Type: Spontaneous
  Country: US (occurrence: US)
  Receive Date: 20141211
  Receipt Date: 20150226
  Transmission Date: 20150720
  Serious: No
  Sender: FDA-Public Use
  Company Number: US-009507513-1412USA001741

PATIENT
  Sex: Female

DRUGS (1)
  1. IMPLANON [Suspect]
     Active Substance: ETONOGESTREL
     Indication: CONTRACEPTION
     Dosage: UNK
     Route: 059
     Dates: start: 201201

REACTIONS (5)
  - Unintended pregnancy [Unknown]
  - Device difficult to use [Not Recovered/Not Resolved]
  - Device dislocation [Not Recovered/Not Resolved]
  - Medical device complication [Not Recovered/Not Resolved]
  - Drug dose omission [Unknown]
